FAERS Safety Report 5032469-6 (Version None)
Quarter: 2006Q2

REPORT INFORMATION
  Report Type: 
  Country: None (occurrence: None)
  Receive Date: 20060508
  Receipt Date: 20050906
  Transmission Date: 20061013
  Serious: Yes (Hospitalization)
  Sender: FDA-Public Use
  Company Number: 234133K05USA

PATIENT
  Age: 46 Year
  Sex: Female

DRUGS (5)
  1. REBIF [Suspect]
     Indication: MULTIPLE SCLEROSIS
     Dosage: 44 MCG, 3 IN 1 WEEKS, SUBCUTANEOUS
     Route: 058
     Dates: start: 20050504, end: 20050607
  2. PROVIGIL [Concomitant]
  3. NITROFURANTOIN [Concomitant]
  4. LORAZEPAM [Concomitant]
  5. OXYBUTYNIN (OXYBUTYNIN /00538901/) [Concomitant]

REACTIONS (1)
  - DEPRESSION [None]
